FAERS Safety Report 13583341 (Version 1)
Quarter: 2017Q2

REPORT INFORMATION
  Report Type: Spontaneous
  Country: DE (occurrence: DE)
  Receive Date: 20170525
  Receipt Date: 20170525
  Transmission Date: 20170830
  Serious: Yes (Hospitalization, Other)
  Sender: FDA-Public Use
  Company Number: DE-009507513-1705DEU008712

PATIENT
  Age: 76 Year
  Sex: Male

DRUGS (1)
  1. SIMVASTATIN. [Suspect]
     Active Substance: SIMVASTATIN
     Indication: CORONARY ARTERY DISEASE
     Dosage: 40 MG TABLET ONCE DAILY
     Route: 048
     Dates: start: 1993, end: 20161006

REACTIONS (6)
  - Coronary vascular graft occlusion [Unknown]
  - Femur fracture [Unknown]
  - Paraesthesia [Unknown]
  - Feeling hot [Unknown]
  - Coronary artery bypass [Unknown]
  - Muscle spasms [Recovering/Resolving]

NARRATIVE: CASE EVENT DATE: 1994
